FAERS Safety Report 12053710 (Version 2)
Quarter: 2016Q2

REPORT INFORMATION
  Report Type: Spontaneous
  Country: US (occurrence: US)
  Receive Date: 20160209
  Receipt Date: 20160502
  Transmission Date: 20160815
  Serious: No
  Sender: FDA-Public Use
  Company Number: US-ROXANE LABORATORIES, INC.-2016-RO-00302RO

PATIENT
  Sex: Male

DRUGS (7)
  1. FUROSEMIDE TABLETS USP, 20 MG [Suspect]
     Active Substance: FUROSEMIDE
     Indication: ASCITES
  2. FUROSEMIDE TABLETS USP, 20 MG [Suspect]
     Active Substance: FUROSEMIDE
     Indication: PLEURAL EFFUSION
  3. FUROSEMIDE TABLETS USP, 20 MG [Suspect]
     Active Substance: FUROSEMIDE
     Indication: COELIAC DISEASE
     Dosage: 160 MG
     Route: 048
     Dates: start: 2015
  4. PREDNISONE TABLETS USP, 10MG [Suspect]
     Active Substance: PREDNISONE
     Dosage: 40 MG
     Route: 048
     Dates: start: 2015
  5. PREDNISONE TABLETS USP, 10MG [Suspect]
     Active Substance: PREDNISONE
     Indication: COELIAC DISEASE
     Route: 048
     Dates: start: 201511
  6. SPIRONOLACTONE. [Concomitant]
     Active Substance: SPIRONOLACTONE
     Indication: COELIAC DISEASE
     Route: 065
  7. FUROSEMIDE TABLETS USP, 20 MG [Suspect]
     Active Substance: FUROSEMIDE
     Indication: OEDEMA PERIPHERAL

REACTIONS (2)
  - Product quality issue [Unknown]
  - Drug ineffective [Not Recovered/Not Resolved]

NARRATIVE: CASE EVENT DATE: 2015
